FAERS Safety Report 9458528 (Version 1)
Quarter: 2013Q3

REPORT INFORMATION
  Report Type: Spontaneous
  Country: US (occurrence: None)
  Receive Date: 20130813
  Receipt Date: 20130813
  Transmission Date: 20140515
  Serious: Yes (Life-Threatening, Hospitalization)
  Sender: FDA-Public Use
  Company Number: None

PATIENT
  Age: 63 Year
  Sex: Female
  Weight: 82.1 kg

DRUGS (16)
  1. XARELTO 15MG JANSSEN [Suspect]
     Indication: ATRIAL FIBRILLATION
     Dosage: 1 PILL QD ORAL
     Route: 048
     Dates: start: 20130801, end: 20130807
  2. XARELTO 15MG JANSSEN [Suspect]
     Indication: CEREBROVASCULAR ACCIDENT PROPHYLAXIS
     Dosage: 1 PILL QD ORAL
     Route: 048
     Dates: start: 20130801, end: 20130807
  3. PACERONE [Suspect]
     Indication: ATRIAL FIBRILLATION
     Dosage: 1 PILL TID ORAL
     Route: 048
     Dates: start: 20130801, end: 20130807
  4. RIVAROXABAN [Concomitant]
  5. PANTOPRAZOLE [Concomitant]
  6. AMIODARONE [Concomitant]
  7. FENOFIBRATE [Concomitant]
  8. OMEGA-3 [Concomitant]
  9. NIACIN-SA [Concomitant]
  10. METOPROLOL [Concomitant]
  11. FERROUS SULFATE [Concomitant]
  12. CARISOPRODOL [Concomitant]
  13. ASPIRIN [Concomitant]
  14. ISOSORBIDE DINITRATE [Concomitant]
  15. DIGOXIN [Concomitant]
  16. TEMAZEPAM [Concomitant]

REACTIONS (3)
  - Lethargy [None]
  - Dyspnoea [None]
  - Ischaemic hepatitis [None]
